FAERS Safety Report 7224695-2 (Version None)
Quarter: 2011Q1

REPORT INFORMATION
  Report Type: 
  Country: None (occurrence: None)
  Receive Date: 20110104
  Receipt Date: 20101220
  Transmission Date: 20110831
  Serious: Yes (Death, Hospitalization)
  Sender: FDA-Public Use
  Company Number: 1000017689

PATIENT
  Age: 81 Year
  Sex: Female

DRUGS (1)
  1. FOSFOMYCIN (FOSFOMYCIN TROMETAMOL) (POWDER) [Suspect]
     Indication: URINARY TRACT INFECTION
     Dosage: 3 GM (3 GM, 1 IN 1 D, ORAL
     Route: 048
     Dates: start: 20101102

REACTIONS (2)
  - BONE MARROW FAILURE [None]
  - CARDIAC FAILURE ACUTE [None]
